FAERS Safety Report 7408764-X (Version None)
Quarter: 2011Q2

REPORT INFORMATION
  Report Type: 
  Country: None (occurrence: None)
  Receive Date: 20110412
  Receipt Date: 20110404
  Transmission Date: 20111010
  Serious: Yes (Other)
  Sender: FDA-Public Use
  Company Number: BE-BRISTOL-MYERS SQUIBB COMPANY-15665169

PATIENT
  Age: 51 Year
  Sex: Male

DRUGS (4)
  1. CILENGITIDE [Suspect]
     Indication: NON-SMALL CELL LUNG CANCER
     Dosage: RECENT INF(2ND):31MAR11
     Route: 042
     Dates: start: 20110328
  2. CETUXIMAB [Suspect]
     Indication: NON-SMALL CELL LUNG CANCER
     Dosage: STRENGTH:5MG/ML
     Route: 042
     Dates: start: 20110328
  3. CISPLATIN [Suspect]
     Indication: NON-SMALL CELL LUNG CANCER
     Route: 042
     Dates: start: 20110329
  4. GEMCITABINE [Suspect]
     Indication: NON-SMALL CELL LUNG CANCER
     Dosage: DAY 1 AND DAY 8 OF EACH 3 WK CYCLE
     Route: 042
     Dates: start: 20110328

REACTIONS (1)
  - CEREBROVASCULAR ACCIDENT [None]
